FAERS Safety Report 20998368 (Version 1)
Quarter: 2022Q2

REPORT INFORMATION
  Report Type: Spontaneous
  Country: BR (occurrence: BR)
  Receive Date: 20220623
  Receipt Date: 20220623
  Transmission Date: 20220720
  Serious: Yes (Other)
  Sender: FDA-Public Use
  Company Number: BR-TAKEDA-2022TUS040853

PATIENT
  Sex: Male

DRUGS (3)
  1. LISDEXAMFETAMINE DIMESYLATE [Suspect]
     Active Substance: LISDEXAMFETAMINE DIMESYLATE
     Indication: Attention deficit hyperactivity disorder
     Dosage: 50 MILLIGRAM
     Route: 065
  2. LISDEXAMFETAMINE DIMESYLATE [Suspect]
     Active Substance: LISDEXAMFETAMINE DIMESYLATE
     Dosage: 70 MICROGRAM
     Route: 065
     Dates: start: 202002
  3. LITHIUM [Concomitant]
     Active Substance: LITHIUM
     Dosage: UNK
     Route: 065
     Dates: start: 202110

REACTIONS (8)
  - Bipolar disorder [Unknown]
  - Drug ineffective [Unknown]
  - Increased appetite [Unknown]
  - Somnolence [Unknown]
  - Hypersensitivity [Recovered/Resolved with Sequelae]
  - Drug tolerance [Unknown]
  - Depression [Unknown]
  - Anger [Unknown]

NARRATIVE: CASE EVENT DATE: 20200301
